FAERS Safety Report 7608814-1 (Version None)
Quarter: 2011Q3

REPORT INFORMATION
  Report Type: 
  Country: None (occurrence: None)
  Receive Date: 20110714
  Receipt Date: 20110706
  Transmission Date: 20111222
  Serious: Yes (Other)
  Sender: FDA-Public Use
  Company Number: FR-ABBOTT-11P-056-0734393-00

PATIENT
  Sex: Male
  Weight: 72 kg

DRUGS (3)
  1. FOLIC ACID [Concomitant]
     Indication: RHEUMATOID ARTHRITIS
     Route: 048
     Dates: start: 20100308
  2. METHOTREXATE [Concomitant]
     Indication: RHEUMATOID ARTHRITIS
     Route: 048
     Dates: start: 20100308
  3. HUMIRA [Suspect]
     Indication: RHEUMATOID ARTHRITIS
     Route: 058
     Dates: start: 20100411

REACTIONS (4)
  - HYPERCHOLESTEROLAEMIA [None]
  - DYSLIPIDAEMIA [None]
  - TACHYCARDIA [None]
  - EXTRASYSTOLES [None]
